FAERS Safety Report 22275985 (Version 3)
Quarter: 2024Q1

REPORT INFORMATION
  Report Type: Report from Study
  Country: JP (occurrence: JP)
  Receive Date: 20230502
  Receipt Date: 20240126
  Transmission Date: 20240410
  Serious: Yes (Death, Other)
  Sender: FDA-Public Use
  Company Number: JP-PFIZER INC-202300176748

PATIENT

DRUGS (4)
  1. LEUCOVORIN CALCIUM [Suspect]
     Active Substance: LEUCOVORIN CALCIUM
     Dosage: 400 MG/M2, CYCLIC,INTRAVENOUS INFUSION
     Route: 042
  2. OXALIPLATIN [Suspect]
     Active Substance: OXALIPLATIN
     Dosage: 85 MG/M2, CYCLIC, ON DAYS 1, 15, AND 29
     Route: 042
  3. FLUOROURACIL [Suspect]
     Active Substance: FLUOROURACIL
     Dosage: 400 MG/M2, CYCLIC, BOLUS
     Route: 042
  4. FLUOROURACIL [Suspect]
     Active Substance: FLUOROURACIL
     Dosage: 2400 MG/M?,CYCLIC, IN A 46-H TO 48-H INFUSION
     Route: 042

REACTIONS (1)
  - Cardiac arrest [Fatal]
